FAERS Safety Report 6402086-1 (Version None)
Quarter: 2009Q4

REPORT INFORMATION
  Report Type: 
  Country: None (occurrence: None)
  Receive Date: 20091015
  Receipt Date: 20091008
  Transmission Date: 20100525
  Serious: Yes (Death)
  Sender: FDA-Public Use
  Company Number: IT-WYE-G04344209

PATIENT
  Sex: Male
  Weight: 81 kg

DRUGS (12)
  1. TORISEL [Suspect]
     Indication: ACUTE MYELOID LEUKAEMIA
     Dosage: THE PATIENT DID NOT RECEIVE TEMSIROLIMUS
  2. CHLORPHENIRAMINE MALEATE [Concomitant]
     Route: 042
     Dates: start: 20090827, end: 20090827
  3. DEXAMETHASONE 0.5MG TAB [Concomitant]
     Route: 042
     Dates: start: 20090827, end: 20090827
  4. ACYCLOVIR [Concomitant]
  5. RANITIDINE [Concomitant]
  6. AMLODIPINE [Concomitant]
  7. FUROSEMIDE [Concomitant]
  8. CIPROFLOXACIN HYDROCHLORIDE [Concomitant]
  9. METHYLPREDNISOLONE [Concomitant]
  10. TRANEXAMIC ACID [Concomitant]
  11. CLOFARABINE [Suspect]
     Route: 042
     Dates: start: 20090827, end: 20090827
  12. ALLOPURINOL [Concomitant]

REACTIONS (10)
  - ASPARTATE AMINOTRANSFERASE INCREASED [None]
  - BLOOD ALKALINE PHOSPHATASE INCREASED [None]
  - BLOOD BILIRUBIN INCREASED [None]
  - BLOOD CHLORIDE DECREASED [None]
  - BLOOD LACTATE DEHYDROGENASE INCREASED [None]
  - BLOOD POTASSIUM DECREASED [None]
  - BLOOD UREA INCREASED [None]
  - CARDIAC ARREST [None]
  - MYOCARDIAL ISCHAEMIA [None]
  - PROTEIN TOTAL DECREASED [None]
